FAERS Safety Report 6399172-1 (Version None)
Quarter: 2009Q4

REPORT INFORMATION
  Report Type: 
  Country: None (occurrence: None)
  Receive Date: 20091008
  Receipt Date: 20090923
  Transmission Date: 20100525
  Serious: Yes (Death, Other)
  Sender: FDA-Public Use
  Company Number: 2009-03886

PATIENT
  Age: 70 Year
  Sex: Male
  Weight: 77 kg

DRUGS (4)
  1. VELCADE [Suspect]
     Indication: MULTIPLE MYELOMA
     Dosage: 2.4 MG, INTRAVENOUS
     Route: 042
     Dates: start: 20081013
  2. DARBEPOETIN ALFA (DARBEPOETIN ALFA) [Concomitant]
  3. INSULIN (INSULIN) [Concomitant]
  4. ENALAPRIL MALEATE [Concomitant]

REACTIONS (12)
  - ANAEMIA [None]
  - AURICULAR SWELLING [None]
  - DIABETES MELLITUS [None]
  - DISEASE PROGRESSION [None]
  - DIZZINESS [None]
  - EPISTAXIS [None]
  - FATIGUE [None]
  - HERPES ZOSTER [None]
  - MUCOSAL INFLAMMATION [None]
  - MULTIPLE MYELOMA [None]
  - PAIN [None]
  - POLYNEUROPATHY [None]
